FAERS Safety Report 7329787-5 (Version None)
Quarter: 2011Q1

REPORT INFORMATION
  Report Type: 
  Country: None (occurrence: None)
  Receive Date: 20110303
  Receipt Date: 20110224
  Transmission Date: 20110831
  Serious: Yes (Other)
  Sender: FDA-Public Use
  Company Number: IE-PFIZER INC-2011040297

PATIENT
  Sex: Female

DRUGS (2)
  1. CYCLOSPORINE [Suspect]
  2. VORICONAZOLE [Suspect]

REACTIONS (2)
  - APLASTIC ANAEMIA [None]
  - DRUG LEVEL INCREASED [None]
